FAERS Safety Report 8622097-5 (Version None)
Quarter: 2012Q3

REPORT INFORMATION
  Report Type: 
  Country: None (occurrence: None)
  Receive Date: 20120826
  Receipt Date: 20120813
  Transmission Date: 20120928
  Serious: Yes (Hospitalization)
  Sender: FDA-Public Use
  Company Number: AT-TEVA-354728ISR

PATIENT
  Sex: Female
  Weight: 72 kg

DRUGS (16)
  1. LENALIDOMIDE [Suspect]
     Indication: MULTIPLE MYELOMA
     Route: 048
     Dates: start: 20100930
  2. ASPIRIN [Concomitant]
     Indication: THROMBOSIS PROPHYLAXIS
     Dosage: 100 MILLIGRAM DAILY;
     Route: 048
     Dates: start: 20100610
  3. TRAMADOL HCL [Concomitant]
     Dosage: 400 MILLIGRAM DAILY;
     Route: 048
     Dates: start: 20120401
  4. CARVEDILOL [Concomitant]
     Indication: ATRIOVENTRICULAR BLOCK
     Dosage: 25 MILLIGRAM DAILY;
     Route: 048
     Dates: start: 20100910
  5. DURAGESIC-100 [Concomitant]
     Indication: PAIN IN EXTREMITY
     Dosage: 12.5 MICROGRAM DAILY;
     Route: 062
     Dates: start: 20120508
  6. DEXAMETHASONE [Suspect]
     Indication: MULTIPLE MYELOMA
     Dosage: ON DAYS 1,8,15 AND 22
     Dates: start: 20100930
  7. DEXAMETHASONE [Suspect]
     Dosage: ON DAYS 1,8,15 AND 22
     Dates: start: 20120608, end: 20120629
  8. AMLODIPINE [Concomitant]
     Indication: HYPERTENSION
     Dosage: 10 MILLIGRAM DAILY;
     Route: 048
     Dates: start: 20100610
  9. MEXALEN [Concomitant]
     Indication: PROPHYLAXIS
     Dosage: 8000 MILLIGRAM DAILY;
     Route: 048
     Dates: start: 20101021
  10. TRAMADOL HCL [Concomitant]
     Indication: BONE PAIN
     Dosage: 400 MILLIGRAM DAILY;
     Route: 048
     Dates: start: 20100928
  11. PANTOPRAZOLE [Concomitant]
     Indication: PROPHYLAXIS AGAINST GASTROINTESTINAL ULCER
     Dosage: 40 MILLIGRAM DAILY;
     Route: 048
     Dates: start: 20101007
  12. IBANDRONATE SODIUM [Concomitant]
     Indication: OSTEOPOROSIS PROPHYLAXIS
     Dates: start: 20110707
  13. LENALIDOMIDE [Suspect]
     Route: 048
     Dates: start: 20120608, end: 20120628
  14. VALACICLOVIR [Concomitant]
     Indication: ORAL HERPES
     Dosage: 500 MILLIGRAM DAILY;
     Route: 048
     Dates: start: 20101021
  15. MORAPID [Concomitant]
     Indication: PAIN IN EXTREMITY
     Route: 048
     Dates: start: 20120508
  16. PARACODIN BITARTRATE TAB [Concomitant]
     Indication: PROPHYLAXIS
     Route: 048
     Dates: start: 20101007

REACTIONS (6)
  - AORTIC VALVE INCOMPETENCE [None]
  - MITRAL VALVE SCLEROSIS [None]
  - CARDIAC FAILURE [None]
  - ARTHRITIS INFECTIVE [None]
  - CONDITION AGGRAVATED [None]
  - INFECTION [None]
